FAERS Safety Report 5210720-7 (Version None)
Quarter: 2007Q1

REPORT INFORMATION
  Report Type: 
  Country: None (occurrence: None)
  Receive Date: 20070116
  Receipt Date: 20070116
  Transmission Date: 20070707
  Serious: No
  Sender: FDA-Public Use
  Company Number: None

PATIENT
  Age: 26 Year
  Sex: Male
  Weight: 117.9352 kg

DRUGS (1)
  1. BUTORPHANOL TARTRATE [Suspect]
     Indication: CLUSTER HEADACHE
     Dosage: METERED DOSE PRN EVERY 8 HRS NASAL
     Route: 045

REACTIONS (3)
  - DRUG INEFFECTIVE [None]
  - MEDICATION TAMPERING [None]
  - PHARMACEUTICAL PRODUCT COMPLAINT [None]
